FAERS Safety Report 7665675-2 (Version None)
Quarter: 2011Q3

REPORT INFORMATION
  Report Type: 
  Country: None (occurrence: None)
  Receive Date: 20110806
  Receipt Date: 20110316
  Transmission Date: 20111222
  Serious: No
  Sender: FDA-Public Use
  Company Number: US-ABBOTT-11P-163-0712014-00

PATIENT
  Sex: Female
  Weight: 72.64 kg

DRUGS (6)
  1. CA OTC [Concomitant]
     Indication: PRODUCT USED FOR UNKNOWN INDICATION
     Dosage: DAILY
  2. RED RICE YEAST PILLS [Concomitant]
     Indication: PRODUCT USED FOR UNKNOWN INDICATION
  3. ACTONEL [Concomitant]
     Indication: PRODUCT USED FOR UNKNOWN INDICATION
     Dosage: 20 MG WEEKLY
  4. NIASPAN [Suspect]
     Indication: FAMILIAL RISK FACTOR
     Dosage: 1000 MG AT BEDTIME
     Dates: start: 20100101
  5. NIASPAN [Suspect]
     Dosage: ONLY ON 1500MG FOR A SHORT TIME
  6. ASPIRIN [Concomitant]
     Indication: PRODUCT USED FOR UNKNOWN INDICATION
     Dosage: 81 MG DAILY

REACTIONS (6)
  - PRURITUS [None]
  - HEPATIC ENZYME INCREASED [None]
  - FLUSHING [None]
  - CONTUSION [None]
  - BURNING SENSATION [None]
  - PARAESTHESIA [None]
